FAERS Safety Report 18224361 (Version 4)
Quarter: 2020Q4

REPORT INFORMATION
  Report Type: Report from Study
  Country: US (occurrence: US)
  Receive Date: 20200902
  Receipt Date: 20201124
  Transmission Date: 20210113
  Serious: No
  Sender: FDA-Public Use
  Company Number: NVSC2020US241551

PATIENT
  Sex: Female

DRUGS (1)
  1. COSENTYX [Suspect]
     Active Substance: SECUKINUMAB
     Indication: PSORIASIS
     Dosage: 300 MG (ONCE WEEKLY FOR 5 WEEKS, THEN ONCE)
     Route: 058
     Dates: start: 20190826

REACTIONS (5)
  - Hypoacusis [Unknown]
  - Diarrhoea [Unknown]
  - Psoriasis [Unknown]
  - Irritable bowel syndrome [Unknown]
  - Decreased appetite [Unknown]
